FAERS Safety Report 4863823-0 (Version None)
Quarter: 2005Q4

REPORT INFORMATION
  Report Type: 
  Country: None (occurrence: None)
  Receive Date: 20051222
  Receipt Date: 20050927
  Transmission Date: 20060501
  Serious: No
  Sender: FDA-Public Use
  Company Number: US-GLAXOSMITHKLINE-A0576071A

PATIENT
  Age: 47 Year
  Sex: Female

DRUGS (2)
  1. FLONASE [Suspect]
     Indication: DRUG USE FOR UNKNOWN INDICATION
     Route: 045
  2. ANTIVIRAL [Concomitant]

REACTIONS (8)
  - ACNE [None]
  - BURNING SENSATION [None]
  - COUGH [None]
  - ERYTHEMA [None]
  - HERPES ZOSTER [None]
  - IMMUNE SYSTEM DISORDER [None]
  - PAIN [None]
  - RASH [None]
